FAERS Safety Report 11292244 (Version 1)
Quarter: 2015Q3

REPORT INFORMATION
  Report Type: Spontaneous
  Country: US (occurrence: None)
  Receive Date: 20150721
  Receipt Date: 20150721
  Transmission Date: 20151125
  Serious: Yes (Disabling, Other)
  Sender: FDA-Public Use
  Company Number: None

PATIENT
  Age: 33 Year
  Sex: Female
  Weight: 68.04 kg

DRUGS (4)
  1. PRORPRANOLOL [Concomitant]
  2. SERTRALINE [Suspect]
     Active Substance: SERTRALINE HYDROCHLORIDE
     Indication: ANXIETY
     Route: 048
     Dates: start: 20070601, end: 20150301
  3. MULTI VITAMIN [Concomitant]
     Active Substance: VITAMINS
  4. SERTRALINE [Suspect]
     Active Substance: SERTRALINE HYDROCHLORIDE
     Indication: DEPRESSION
     Route: 048
     Dates: start: 20070601, end: 20150301

REACTIONS (13)
  - Movement disorder [None]
  - Muscular weakness [None]
  - VIIth nerve paralysis [None]
  - Aphasia [None]
  - Nervous system disorder [None]
  - Gait disturbance [None]
  - Fatigue [None]
  - Confusional state [None]
  - Dystonia [None]
  - Social problem [None]
  - Impaired driving ability [None]
  - Drop attacks [None]
  - Impaired work ability [None]
